FAERS Safety Report 8793461 (Version 2)
Quarter: 2013Q1

REPORT INFORMATION
  Report Type: Spontaneous
  Country: US (occurrence: US)
  Receive Date: 20120917
  Receipt Date: 20130129
  Transmission Date: 20140127
  Serious: No
  Sender: FDA-Public Use
  Company Number: US-ASTRAZENECA-2012SE65070

PATIENT
  Age: 65 Year
  Sex: Female
  Weight: 74.8 kg

DRUGS (1)
  1. ZOMIG [Suspect]
     Indication: MIGRAINE
     Route: 048

REACTIONS (4)
  - Migraine [Unknown]
  - Stress [Unknown]
  - Headache [Unknown]
  - Drug dose omission [Unknown]
